FAERS Safety Report 8369424-4 (Version None)
Quarter: 2012Q2

REPORT INFORMATION
  Report Type: 
  Country: None (occurrence: None)
  Receive Date: 20120518
  Receipt Date: 20120507
  Transmission Date: 20120825
  Serious: Yes (Hospitalization, Other)
  Sender: FDA-Public Use
  Company Number: US-JNJFOC-20120509581

PATIENT
  Sex: Male
  Weight: 45.36 kg

DRUGS (6)
  1. PROCRIT [Concomitant]
     Route: 058
  2. ZYTIGA [Suspect]
     Route: 048
     Dates: start: 20110801, end: 20111001
  3. PREDNISONE [Suspect]
     Indication: PROSTATE CANCER
     Route: 065
     Dates: start: 20110801, end: 20111001
  4. PROCRIT [Concomitant]
     Indication: ANAEMIA
     Route: 058
     Dates: start: 20120301, end: 20120301
  5. ZYTIGA [Suspect]
     Indication: PROSTATE CANCER
     Route: 048
     Dates: start: 20111001
  6. PREDNISONE [Suspect]
     Route: 065
     Dates: start: 20111001

REACTIONS (8)
  - PRURITUS GENERALISED [None]
  - RESPIRATORY RATE INCREASED [None]
  - FATIGUE [None]
  - DYSPNOEA [None]
  - ANAEMIA [None]
  - SOMNOLENCE [None]
  - ASTHENIA [None]
  - FLUID RETENTION [None]
